FAERS Safety Report 9191465 (Version 1)
Quarter: 2013Q1

REPORT INFORMATION
  Report Type: Spontaneous
  Country: US (occurrence: US)
  Receive Date: 20130326
  Receipt Date: 20130326
  Transmission Date: 20140127
  Serious: No
  Sender: FDA-Public Use
  Company Number: US-009507513-1303USA010688

PATIENT
  Age: 38 Year
  Sex: Male

DRUGS (3)
  1. VICTRELIS [Suspect]
     Indication: HEPATITIS C
     Dosage: 800 MG, 3 TIMES A DAY
     Route: 048
     Dates: start: 20130304
  2. PEGASYS [Suspect]
     Dosage: UNK
  3. RIBAPAK [Suspect]
     Dosage: UNK

REACTIONS (3)
  - Headache [Not Recovered/Not Resolved]
  - Dizziness [Not Recovered/Not Resolved]
  - Poor quality sleep [Not Recovered/Not Resolved]
